FAERS Safety Report 8893639 (Version 1)
Quarter: 2012Q4

REPORT INFORMATION
  Report Type: 
  Country: US (occurrence: US)
  Receive Date: 20121108
  Receipt Date: 20121108
  Transmission Date: 20130627
  Serious: No
  Sender: FDA-Public Use
  Company Number: US-009507513-1211USA003287

PATIENT
  Age: 16 Year
  Sex: Male

DRUGS (1)
  1. MAXALT [Suspect]
     Indication: MIGRAINE
     Dosage: 10 mg, UNK
     Route: 048
     Dates: start: 20121106

REACTIONS (1)
  - Headache [Not Recovered/Not Resolved]
